FAERS Safety Report 11756547 (Version 1)
Quarter: 2015Q4

REPORT INFORMATION
  Report Type: Report from Study
  Country: DE (occurrence: DE)
  Receive Date: 20151119
  Receipt Date: 20151119
  Transmission Date: 20160304
  Serious: Yes (Hospitalization, Other)
  Sender: FDA-Public Use
  Company Number: DE-ROCHE-1286855

PATIENT
  Age: 74 Year
  Sex: Female
  Weight: 63 kg

DRUGS (15)
  1. VEMURAFENIB [Suspect]
     Active Substance: VEMURAFENIB
     Indication: METASTATIC MALIGNANT MELANOMA
     Dosage: ON 06/OCT/2013 THE PATIENT RECEIVED THE MOST RECENT DOSE PRIOR TO EVENT OF ELEVATED AST AND 06/OCT/2
     Route: 048
     Dates: start: 20130927
  2. VEMURAFENIB [Suspect]
     Active Substance: VEMURAFENIB
     Route: 048
     Dates: start: 20130927
  3. VEMURAFENIB [Suspect]
     Active Substance: VEMURAFENIB
     Dosage: MOST RECENT DOSE: 20/NOV/2013
     Route: 048
     Dates: start: 20130927
  4. NOVAMINSULFON [Concomitant]
     Active Substance: METAMIZOLE
     Indication: MUSCLE TIGHTNESS
     Route: 048
     Dates: start: 201307
  5. QUAZEPAM. [Concomitant]
     Active Substance: QUAZEPAM
     Indication: SLEEP DISORDER
     Route: 048
     Dates: start: 2013
  6. OXAZEPAM. [Concomitant]
     Active Substance: OXAZEPAM
     Indication: INSOMNIA
     Route: 048
     Dates: start: 20131010, end: 20131013
  7. CIPROFLOXACIN. [Concomitant]
     Active Substance: CIPROFLOXACIN
     Indication: URINARY TRACT INFECTION
     Dosage: SELECT IF ONGOING=NO
     Route: 048
     Dates: start: 20131010, end: 20131018
  8. LIDOCAINE. [Concomitant]
     Active Substance: LIDOCAINE
     Indication: APHTHOUS ULCER
     Route: 061
     Dates: start: 2012
  9. LIDOCAINE. [Concomitant]
     Active Substance: LIDOCAINE
     Route: 061
     Dates: start: 20131106
  10. IBUPROFEN. [Concomitant]
     Active Substance: IBUPROFEN
     Indication: MUSCLE TIGHTNESS
     Route: 048
     Dates: start: 201307
  11. PARACETAMOL [Concomitant]
     Active Substance: ACETAMINOPHEN
     Indication: MUSCLE TIGHTNESS
     Route: 048
     Dates: start: 201307
  12. COBIMETINIB [Suspect]
     Active Substance: COBIMETINIB
     Route: 048
     Dates: start: 20131023
  13. LACTULOSE. [Concomitant]
     Active Substance: LACTULOSE
     Indication: CONSTIPATION
     Route: 048
     Dates: start: 20131007, end: 20131007
  14. TRIMIPRAMINE [Concomitant]
     Active Substance: TRIMIPRAMINE
     Indication: SLEEP DISORDER
     Route: 048
  15. COBIMETINIB [Suspect]
     Active Substance: COBIMETINIB
     Indication: METASTATIC MALIGNANT MELANOMA
     Dosage: ON 06/OCT/2013, THE PATIENT RECEIVED THE MOST RECENT DOSE PRIOR TO GGT ELEVATION
     Route: 048
     Dates: start: 20130927

REACTIONS (5)
  - Rash generalised [Recovered/Resolved]
  - Transaminases increased [Recovered/Resolved]
  - Aspartate aminotransferase increased [Recovered/Resolved]
  - Alanine aminotransferase increased [Recovered/Resolved]
  - Gamma-glutamyltransferase increased [Recovered/Resolved]

NARRATIVE: CASE EVENT DATE: 20131006
